FAERS Safety Report 19495411 (Version 1)
Quarter: 2021Q3

REPORT INFORMATION
  Report Type: Other
  Country: CN (occurrence: CN)
  Receive Date: 20210706
  Receipt Date: 20210706
  Transmission Date: 20211014
  Serious: Yes (Other)
  Sender: FDA-Public Use
  Company Number: CN-ROCHE-2763263

PATIENT

DRUGS (3)
  1. OXALIPLATIN. [Suspect]
     Active Substance: OXALIPLATIN
     Indication: COLORECTAL CANCER METASTATIC
     Dosage: ON DAY 1
     Route: 042
  2. CATEQUENTINIB. [Suspect]
     Active Substance: CATEQUENTINIB
     Indication: COLORECTAL CANCER METASTATIC
     Route: 048
  3. CAPECITABINE. [Suspect]
     Active Substance: CAPECITABINE
     Indication: COLORECTAL CANCER METASTATIC
     Dosage: DAY 1?14
     Route: 048

REACTIONS (4)
  - Lipase increased [Unknown]
  - Hypertriglyceridaemia [Unknown]
  - Hypertension [Unknown]
  - Neutropenia [Unknown]
